FAERS Safety Report 25985192 (Version 1)
Quarter: 2025Q4

REPORT INFORMATION
  Report Type: Spontaneous
  Country: US (occurrence: US)
  Receive Date: 20251031
  Receipt Date: 20251031
  Transmission Date: 20260117
  Serious: No
  Sender: Tarsus Pharmaceuticals
  Company Number: US-TARSUS PHARMACEUTICALS-TSP-US-2025-000764

PATIENT

DRUGS (2)
  1. XDEMVY [Suspect]
     Active Substance: LOTILANER
     Indication: Dry eye
     Dosage: 1 DROP, BID (TWICE DAILY, 12 HOURS APART)
     Route: 047
     Dates: start: 20250603
  2. XDEMVY [Suspect]
     Active Substance: LOTILANER
     Indication: Arthropod infestation

REACTIONS (2)
  - Drug effective for unapproved indication [Unknown]
  - Inappropriate schedule of product administration [Unknown]
